FAERS Safety Report 4724738-1 (Version None)
Quarter: 2005Q3

REPORT INFORMATION
  Report Type: 
  Country: None (occurrence: None)
  Receive Date: 20050726
  Receipt Date: 20050630
  Transmission Date: 20060218
  Serious: Yes (Other)
  Sender: FDA-Public Use
  Company Number: US-GLAXOSMITHKLINE-A0564762A

PATIENT
  Age: 77 Year
  Sex: Male
  Weight: 79.5 kg

DRUGS (3)
  1. AMOXIL [Suspect]
     Indication: INFECTION PROPHYLAXIS
     Dosage: 1000MG TWICE PER DAY
     Route: 048
     Dates: start: 20050630, end: 20050630
  2. LOTENSIN [Concomitant]
  3. ATENOLOL [Concomitant]

REACTIONS (4)
  - ASTHENIA [None]
  - DIARRHOEA [None]
  - NAUSEA [None]
  - SYNCOPE [None]
